FAERS Safety Report 4297449-7 (Version None)
Quarter: 2004Q1

REPORT INFORMATION
  Report Type: 
  Country: None (occurrence: None)
  Receive Date: 20040213
  Receipt Date: 20030721
  Transmission Date: 20041129
  Serious: Yes (Hospitalization)
  Sender: FDA-Public Use
  Company Number: 200316323US

PATIENT
  Age: 33 Year
  Sex: Female

DRUGS (1)
  1. RILUTEK [Suspect]
     Indication: AMYOTROPHIC LATERAL SCLEROSIS
     Dosage: 50 MG BID
     Dates: start: 20030501

REACTIONS (2)
  - BLOOD METHAEMOGLOBIN PRESENT [None]
  - SUICIDE ATTEMPT [None]
